FAERS Safety Report 9564499 (Version 3)
Quarter: 2013Q4

REPORT INFORMATION
  Report Type: Spontaneous
  Country: DE (occurrence: DE)
  Receive Date: 20130930
  Receipt Date: 20131009
  Transmission Date: 20140711
  Serious: Yes (Hospitalization)
  Sender: FDA-Public Use
  Company Number: DE-JNJFOC-20130913786

PATIENT
  Age: 87 Year
  Sex: Female

DRUGS (6)
  1. XARELTO [Suspect]
     Indication: ATRIAL FIBRILLATION
     Route: 048
     Dates: start: 20130607, end: 20130905
  2. XARELTO [Suspect]
     Indication: CEREBROVASCULAR ACCIDENT PROPHYLAXIS
     Route: 048
     Dates: start: 20130607, end: 20130905
  3. HYDROCHLOROTHIAZIDE AND OLMESARTAN [Concomitant]
     Route: 065
  4. TORASEMID [Concomitant]
     Dosage: DOSAGE :5
     Route: 065
  5. ISDN [Concomitant]
     Dosage: 40 RETARD
     Route: 065
  6. MIRTAZAPIN [Concomitant]
     Dosage: DOSAGE: 30
     Route: 065

REACTIONS (4)
  - Cerebral amyloid angiopathy [Recovered/Resolved]
  - Subarachnoid haemorrhage [Recovered/Resolved]
  - Cerebral haemorrhage [Recovered/Resolved]
  - Lacunar infarction [Recovered/Resolved]
